APPROVED DRUG PRODUCT: FEXOFENADINE HYDROCHLORIDE HIVES
Active Ingredient: FEXOFENADINE HYDROCHLORIDE
Strength: 180MG
Dosage Form/Route: TABLET;ORAL
Application: A076502 | Product #009
Applicant: DR REDDYS LABORATORIES LTD
Approved: Apr 12, 2011 | RLD: No | RS: No | Type: OTC